FAERS Safety Report 19573909 (Version 1)
Quarter: 2021Q3

REPORT INFORMATION
  Report Type: Spontaneous
  Country: TW (occurrence: TW)
  Receive Date: 20210718
  Receipt Date: 20210718
  Transmission Date: 20211014
  Serious: Yes (Other)
  Sender: FDA-Public Use
  Company Number: TW-JNJFOC-20210729110

PATIENT
  Age: 54 Year
  Sex: Male

DRUGS (6)
  1. RIVAROXABAN [Suspect]
     Active Substance: RIVAROXABAN
     Indication: PRODUCT USED FOR UNKNOWN INDICATION
     Dosage: 20 MG
     Route: 048
  2. NEXIUM I.V. [Concomitant]
     Active Substance: ESOMEPRAZOLE SODIUM
     Dosage: 40 MG
  3. EURICON [Concomitant]
     Dosage: 50 MG
  4. ADEMPAS [Suspect]
     Active Substance: RIOCIGUAT
     Indication: PULMONARY HYPERTENSION
     Dosage: 1 DF, BID
     Route: 048
     Dates: start: 20170628
  5. DELCOPAN [Concomitant]
     Dosage: 60 MG
  6. RASITOL [FUROSEMIDE] [Concomitant]
     Active Substance: FUROSEMIDE
     Dosage: 40 MG

REACTIONS (3)
  - Blood uric acid increased [Not Recovered/Not Resolved]
  - Inappropriate schedule of product administration [Unknown]
  - Nerve root injury lumbar [Not Recovered/Not Resolved]

NARRATIVE: CASE EVENT DATE: 20170628
